FAERS Safety Report 7731658-7 (Version None)
Quarter: 2011Q3

REPORT INFORMATION
  Report Type: 
  Country: None (occurrence: None)
  Receive Date: 20110906
  Receipt Date: 20110622
  Transmission Date: 20111222
  Serious: No
  Sender: FDA-Public Use
  Company Number: US-AMGEN-USASP2011031931

PATIENT
  Age: 76 Year
  Sex: Female

DRUGS (6)
  1. PROLIA [Suspect]
     Indication: OSTEOPOROSIS POSTMENOPAUSAL
     Dosage: 60 MG, Q6MO
     Dates: start: 20110526
  2. VITAMIN C                          /00008001/ [Concomitant]
  3. CALCIUM CARBONATE [Concomitant]
  4. VITAMIN D [Concomitant]
  5. PRAVASTATIN [Concomitant]
  6. CENTRUM SILVER                     /01292501/ [Concomitant]

REACTIONS (2)
  - MUSCULOSKELETAL PAIN [None]
  - BACK PAIN [None]
